FAERS Safety Report 6532115-6 (Version None)
Quarter: 2010Q1

REPORT INFORMATION
  Report Type: 
  Country: None (occurrence: None)
  Receive Date: 20100107
  Receipt Date: 20100107
  Transmission Date: 20100710
  Serious: Yes (Disabling)
  Sender: FDA-Public Use
  Company Number: None

PATIENT
  Age: 60 Year
  Sex: Female

DRUGS (1)
  1. MOXIFLOXACIN HCL [Suspect]
     Dosage: 400 MG EVERY DAY PO
     Route: 048
     Dates: start: 20090629, end: 20090710

REACTIONS (1)
  - TENDON RUPTURE [None]
